FAERS Safety Report 7260887-4 (Version None)
Quarter: 2011Q1

REPORT INFORMATION
  Report Type: 
  Country: None (occurrence: None)
  Receive Date: 20110130
  Receipt Date: 20101227
  Transmission Date: 20110831
  Serious: No
  Sender: FDA-Public Use
  Company Number: US-ABBOTT-10P-163-0693702-00

PATIENT
  Age: 47 Year
  Sex: Male

DRUGS (9)
  1. NOVOLOG [Concomitant]
     Indication: DIABETES MELLITUS
  2. CHOLESTYRAMINE [Concomitant]
     Indication: DIARRHOEA
  3. HUMIRA [Suspect]
     Indication: CROHN'S DISEASE
     Dates: start: 20100826
  4. LORTAB [Concomitant]
     Indication: PAIN
  5. PENTASA [Concomitant]
     Indication: PRODUCT USED FOR UNKNOWN INDICATION
  6. FOLBIC [Concomitant]
     Indication: THYROID DISORDER
  7. ZOLPIDEM [Concomitant]
     Indication: INSOMNIA
  8. GLIMEPIRIDE [Concomitant]
     Indication: DIABETES MELLITUS
     Dosage: DAILY
  9. POTASSIUM [Concomitant]
     Indication: ELECTROLYTE SUBSTITUTION THERAPY

REACTIONS (2)
  - INJECTION SITE PAIN [None]
  - INJECTION SITE SWELLING [None]
